FAERS Safety Report 7062811-6 (Version None)
Quarter: 2010Q4

REPORT INFORMATION
  Report Type: 
  Country: None (occurrence: None)
  Receive Date: 20101026
  Receipt Date: 20100201
  Transmission Date: 20110411
  Serious: No
  Sender: FDA-Public Use
  Company Number: US-PFIZER INC-2010014551

PATIENT
  Sex: Male
  Weight: 91.6 kg

DRUGS (10)
  1. LIPITOR [Suspect]
     Indication: BLOOD CHOLESTEROL INCREASED
     Dosage: 5 MG, UNK
     Route: 048
  2. LISINOPRIL [Suspect]
     Indication: CARDIAC DISORDER
     Dosage: 5 MG, UNK
     Route: 048
  3. COREG [Suspect]
     Indication: CARDIAC DISORDER
     Dosage: 37.5 MG DAILY
     Route: 048
  4. NIASPAN [Concomitant]
     Dosage: UNK
  5. MULTI-VITAMINS [Concomitant]
     Dosage: UNK
  6. ASCORBIC ACID [Concomitant]
     Dosage: UNK
  7. VITAMIN D [Concomitant]
     Dosage: UNK
  8. VITAMIN E [Concomitant]
     Dosage: UNK
  9. FISH OIL [Concomitant]
     Dosage: UNK
  10. ACETYLSALICYLIC ACID [Concomitant]
     Dosage: UNK

REACTIONS (1)
  - MUSCULOSKELETAL PAIN [None]
